FAERS Safety Report 7409791-9 (Version None)
Quarter: 2011Q2

REPORT INFORMATION
  Report Type: 
  Country: None (occurrence: None)
  Receive Date: 20110412
  Receipt Date: 20110405
  Transmission Date: 20111010
  Serious: Yes (Hospitalization, Other)
  Sender: FDA-Public Use
  Company Number: US-ABBOTT-11P-163-0717293-00

PATIENT
  Sex: Male
  Weight: 98.972 kg

DRUGS (4)
  1. ALEVE [Suspect]
     Indication: PAIN
     Dates: end: 20101201
  2. HUMIRA [Suspect]
     Indication: PSORIATIC ARTHROPATHY
     Route: 058
  3. HUMIRA [Suspect]
     Indication: PSORIASIS
     Dosage: ONCE, LOADING DOSE
     Route: 058
  4. HYDROCODONE [Concomitant]
     Indication: PAIN

REACTIONS (12)
  - DEHYDRATION [None]
  - LOSS OF CONSCIOUSNESS [None]
  - CARDIAC MURMUR [None]
  - CHEST PAIN [None]
  - FAECES DISCOLOURED [None]
  - ULCER HAEMORRHAGE [None]
  - BLADDER NEOPLASM [None]
  - PNEUMONIA [None]
  - VASCULAR CALCIFICATION [None]
  - MUSCLE STRAIN [None]
  - DYSURIA [None]
  - BLOOD URINE PRESENT [None]
